FAERS Safety Report 20866983 (Version 1)
Quarter: 2022Q2

REPORT INFORMATION
  Report Type: Spontaneous
  Country: US (occurrence: None)
  Receive Date: 20220523
  Receipt Date: 20220523
  Transmission Date: 20220721
  Serious: No
  Sender: FDA-Public Use
  Company Number: None

PATIENT
  Sex: Female

DRUGS (1)
  1. COSENTYX [Suspect]
     Active Substance: SECUKINUMAB
     Indication: Psoriatic arthropathy
     Dosage: 300MG EVERY 4 WEEKS SUBCUTANEOUS
     Route: 058
     Dates: start: 20200104

REACTIONS (5)
  - Musculoskeletal stiffness [None]
  - Back pain [None]
  - Pain in extremity [None]
  - Ligament sprain [None]
  - Drug ineffective [None]
